FAERS Safety Report 10505190 (Version 1)
Quarter: 2014Q4

REPORT INFORMATION
  Report Type: Other
  Country: IT (occurrence: IT)
  Receive Date: 20141008
  Receipt Date: 20141008
  Transmission Date: 20150528
  Serious: Yes (Hospitalization)
  Sender: FDA-Public Use
  Company Number: IT-CUBIST PHARMACEUTICALS, INC.-2014CBST001394

PATIENT

DRUGS (3)
  1. GENTAMYCIN                         /00047101/ [Suspect]
     Active Substance: GENTAMICIN
     Indication: ENDOCARDITIS STAPHYLOCOCCAL
     Dosage: 160 MG, QD
     Route: 042
     Dates: start: 20140718, end: 20140729
  2. CUBICIN [Suspect]
     Active Substance: DAPTOMYCIN
     Indication: OFF LABEL USE
  3. CUBICIN [Suspect]
     Active Substance: DAPTOMYCIN
     Indication: ENDOCARDITIS STAPHYLOCOCCAL
     Dosage: 850 MG, QD
     Route: 042
     Dates: start: 20140718, end: 20140729

REACTIONS (3)
  - Renal failure [Recovering/Resolving]
  - Hypercreatininaemia [Recovering/Resolving]
  - Off label use [Unknown]

NARRATIVE: CASE EVENT DATE: 20140729
